FAERS Safety Report 5810477-2 (Version None)
Quarter: 2008Q3

REPORT INFORMATION
  Report Type: 
  Country: None (occurrence: None)
  Receive Date: 20080715
  Receipt Date: 20080704
  Transmission Date: 20090109
  Serious: Yes (Hospitalization)
  Sender: FDA-Public Use
  Company Number: DE-PFIZER INC-2008054876

PATIENT
  Sex: Female
  Weight: 67 kg

DRUGS (4)
  1. AROMASIN [Suspect]
     Indication: BREAST CANCER
     Route: 048
  2. METOPROLOL [Concomitant]
     Route: 048
  3. ASPIRIN [Concomitant]
     Route: 048
  4. MIRTAZAPINE [Concomitant]
     Route: 048

REACTIONS (1)
  - DYSPNOEA EXERTIONAL [None]
